FAERS Safety Report 8767345 (Version 1)
Quarter: 2012Q4

REPORT INFORMATION
  Report Type: Report from Study
  Country: US (occurrence: US)
  Receive Date: 20120904
  Receipt Date: 20120904
  Transmission Date: 20130627
  Serious: Yes (Hospitalization)
  Sender: FDA-Public Use
  Company Number: US-BRISTOL-MYERS SQUIBB COMPANY-15187974

PATIENT
  Age: 46 Year
  Sex: Male

DRUGS (11)
  1. IPILIMUMAB [Suspect]
     Indication: MALIGNANT MELANOMA
     Route: 042
     Dates: start: 20100525
  2. ATIVAN [Concomitant]
     Indication: ANXIETY
     Dosage: as necessary,start with 1 tab if no effect after 30min repeat the dosex 1 for 1mg
     Route: 048
  3. CALCIUM GLUCONATE [Concomitant]
     Dosage: 600(46)mg tab take 2
     Route: 048
  4. COMPAZINE [Concomitant]
     Indication: NAUSEA
     Dosage: as necessary,take 1 tab
     Route: 048
  5. DEXAMETHASONE [Concomitant]
     Dosage: 80 tabs 2mg:qam;0.75mg:qpm
     Route: 048
  6. EXCEDRIN MIGRAINE [Concomitant]
     Indication: HEADACHE
     Dosage: as necessary,APAP 250mg+Asp250mg+Caffeine65mg. 1 tab
     Route: 048
  7. FERROUS SULFATE [Concomitant]
     Route: 048
  8. LEVETIRACETAM [Concomitant]
     Dosage: tab
     Route: 048
  9. PRILOSEC [Concomitant]
     Dosage: capsulex30 days
     Route: 048
  10. VITAMIN D3 [Concomitant]
     Dosage: 2000unit tab take 1
     Route: 048
  11. ZOFRAN [Concomitant]
     Indication: NAUSEA
     Dosage: as necessary take 1 tab
     Route: 048

REACTIONS (1)
  - Diarrhoea [Recovered/Resolved with Sequelae]
